FAERS Safety Report 23745858 (Version 2)
Quarter: 2024Q2

REPORT INFORMATION
  Report Type: Spontaneous
  Country: PT (occurrence: None)
  Receive Date: 20240416
  Receipt Date: 20240422
  Transmission Date: 20240716
  Serious: Yes (Other)
  Sender: FDA-Public Use
  Company Number: PT-ROCHE-3545466

PATIENT
  Age: 46 Year

DRUGS (1)
  1. OBINUTUZUMAB [Suspect]
     Active Substance: OBINUTUZUMAB
     Indication: Chronic lymphocytic leukaemia
     Route: 042

REACTIONS (8)
  - Cytokine release syndrome [Unknown]
  - Tremor [Unknown]
  - Chills [Unknown]
  - Renal failure [Unknown]
  - Pyrexia [Unknown]
  - Infusion related reaction [Unknown]
  - Oesophageal spasm [Unknown]
  - Hiccups [Unknown]
